FAERS Safety Report 4867652-3 (Version None)
Quarter: 2005Q4

REPORT INFORMATION
  Report Type: 
  Country: None (occurrence: None)
  Receive Date: 20051222
  Receipt Date: 20051222
  Transmission Date: 20060501
  Serious: No
  Sender: FDA-Public Use
  Company Number: None

PATIENT
  Age: 59 Year
  Sex: Male
  Weight: 111 kg

DRUGS (15)
  1. QUETIAPINE FUMARATE [Suspect]
     Indication: SCHIZOPHRENIA
     Dates: start: 20050620, end: 20050623
  2. TYLENOL [Concomitant]
  3. ASPIRIN [Concomitant]
  4. BUSPIRONE [Concomitant]
  5. FOLIC ACID [Concomitant]
  6. GABAPENTIN [Concomitant]
  7. HALOPERIDOL [Concomitant]
  8. INSULIN [Concomitant]
  9. OMEPRAZOLE [Concomitant]
  10. PROPRANOLOL [Concomitant]
  11. SIMETHICONE [Concomitant]
  12. SPIRONOLACTONE [Concomitant]
  13. THIAMINE [Concomitant]
  14. TRAMADOL HCL [Concomitant]
  15. VANCOMYCIN [Concomitant]

REACTIONS (7)
  - CELLULITIS [None]
  - HYPOVENTILATION [None]
  - LETHARGY [None]
  - MOANING [None]
  - OXYGEN SATURATION DECREASED [None]
  - SOMNOLENCE [None]
  - UNRESPONSIVE TO VERBAL STIMULI [None]
